FAERS Safety Report 8737343 (Version 3)
Quarter: 2012Q4

REPORT INFORMATION
  Report Type: 
  Country: KR (occurrence: KR)
  Receive Date: 20120822
  Receipt Date: 20120925
  Transmission Date: 20130627
  Serious: Yes (Hospitalization)
  Sender: FDA-Public Use
  Company Number: KR-ELI_LILLY_AND_COMPANY-KR201208005482

PATIENT
  Age: 33 Year
  Sex: Male
  Weight: 114 kg

DRUGS (7)
  1. BYETTA [Suspect]
     Indication: TYPE 2 DIABETES MELLITUS
     Dosage: 5 ug, bid
     Route: 058
     Dates: start: 20120421, end: 201207
  2. BYETTA [Suspect]
     Dosage: 10 ug, bid
     Route: 058
     Dates: start: 201207
  3. DRUG USED IN DIABETES [Concomitant]
     Indication: TYPE 2 DIABETES MELLITUS
     Dosage: UNK, unknown
  4. ANTIHYPERTENSIVES [Concomitant]
     Indication: HYPERTENSION
     Dosage: UNK, unknown
  5. AMARYL [Concomitant]
     Indication: TYPE 2 DIABETES MELLITUS
  6. DIABEX [Concomitant]
     Indication: TYPE 2 DIABETES MELLITUS
  7. COZAAR [Concomitant]
     Indication: HYPERTENSION

REACTIONS (2)
  - Glycosylated haemoglobin increased [Recovering/Resolving]
  - Blood glucose increased [Recovered/Resolved]
